FAERS Safety Report 21292745 (Version 2)
Quarter: 2022Q4

REPORT INFORMATION
  Report Type: Spontaneous
  Country: US (occurrence: US)
  Receive Date: 20220905
  Receipt Date: 20221115
  Transmission Date: 20230113
  Serious: No
  Sender: FDA-Public Use
  Company Number: US-NEBO-PC008972

PATIENT
  Age: 79 Year
  Sex: Female

DRUGS (4)
  1. MONOFERRIC [Suspect]
     Active Substance: FERRIC DERISOMALTOSE
     Indication: Iron deficiency
     Route: 050
     Dates: start: 20220805, end: 20220805
  2. IODINE [Suspect]
     Active Substance: IODINE
     Indication: Computerised tomogram
  3. LISINOPRIL [Concomitant]
     Active Substance: LISINOPRIL
     Indication: Blood pressure measurement
  4. REPATHA [Concomitant]
     Active Substance: EVOLOCUMAB
     Indication: Blood cholesterol
     Dates: end: 202208

REACTIONS (10)
  - Abdominal pain upper [Recovering/Resolving]
  - Disorientation [Recovering/Resolving]
  - Pain in extremity [Recovering/Resolving]
  - Hyperhidrosis [Recovering/Resolving]
  - Erythema [Recovering/Resolving]
  - Peripheral swelling [Recovered/Resolved]
  - Urticaria [Recovering/Resolving]
  - Visual impairment [Recovering/Resolving]
  - Muscular weakness [Recovering/Resolving]
  - Blood phosphorus decreased [Recovering/Resolving]

NARRATIVE: CASE EVENT DATE: 20220805
